FAERS Safety Report 5626602-2 (Version None)
Quarter: 2008Q1

REPORT INFORMATION
  Report Type: 
  Country: None (occurrence: None)
  Receive Date: 20080214
  Receipt Date: 20080205
  Transmission Date: 20080703
  Serious: Yes (Other)
  Sender: FDA-Public Use
  Company Number: GB-ELI_LILLY_AND_COMPANY-GB200801006678

PATIENT
  Sex: Male

DRUGS (1)
  1. STRATTERA [Suspect]
     Dosage: 36 MG, UNKNOWN
     Route: 065
     Dates: start: 20080111

REACTIONS (2)
  - PERIPHERAL COLDNESS [None]
  - TIC [None]
